FAERS Safety Report 16068816 (Version 1)
Quarter: 2019Q1

REPORT INFORMATION
  Report Type: Spontaneous
  Country: IL (occurrence: IL)
  Receive Date: 20190313
  Receipt Date: 20190313
  Transmission Date: 20190418
  Serious: Yes (Hospitalization, Other)
  Sender: FDA-Public Use
  Company Number: IL-ASTRAZENECA-2019SE20486

PATIENT
  Age: 116 Day
  Sex: Female

DRUGS (3)
  1. FUSID [Concomitant]
     Indication: PRODUCT USED FOR UNKNOWN INDICATION
  2. SYNAGIS [Suspect]
     Active Substance: PALIVIZUMAB
     Indication: ANTIVIRAL PROPHYLAXIS
     Route: 030
  3. SYNAGIS [Suspect]
     Active Substance: PALIVIZUMAB
     Indication: ANTIVIRAL PROPHYLAXIS
     Route: 030
     Dates: start: 20181118, end: 20181218

REACTIONS (8)
  - Coagulopathy [Unknown]
  - Pneumonia bacterial [Unknown]
  - Dermatitis diaper [Unknown]
  - Respiratory syncytial virus bronchiolitis [Recovered/Resolved]
  - Atelectasis [Unknown]
  - Respiratory acidosis [Unknown]
  - Precocious puberty [Unknown]
  - Cardiac murmur [Unknown]

NARRATIVE: CASE EVENT DATE: 20190117
